FAERS Safety Report 5220077-3 (Version None)
Quarter: 2007Q1

REPORT INFORMATION
  Report Type: 
  Country: None (occurrence: None)
  Receive Date: 20070124
  Receipt Date: 20070124
  Transmission Date: 20070707
  Serious: Yes (Life-Threatening)
  Sender: FDA-Public Use
  Company Number: None

PATIENT
  Age: 68 Year
  Sex: Male
  Weight: 121.1104 kg

DRUGS (11)
  1. CIPROFLOXACIN HCL [Suspect]
     Indication: URINARY TRACT INFECTION
     Dosage: 250 MG PO BID
     Route: 048
     Dates: start: 20061005, end: 20061010
  2. ACETAMINOPHEN/OXYCODONE TAB [Concomitant]
  3. ALBUTEROL UNIT DOSE SOLN [Concomitant]
  4. FLUNISOLIDE INHALANT [Concomitant]
  5. FORMOTEROL CAP [Concomitant]
  6. IPRATROPIUM INHL [Concomitant]
  7. IPRATROPIUM SOLN [Concomitant]
  8. LEVALBUTEROL INHL [Concomitant]
  9. OMEPRAZOLE [Concomitant]
  10. SENNA TAB [Concomitant]
  11. SIMVASTATIN [Concomitant]

REACTIONS (1)
  - PLATELET COUNT DECREASED [None]
